FAERS Safety Report 18442208 (Version 1)
Quarter: 2020Q4

REPORT INFORMATION
  Report Type: Report from Study
  Country: HU (occurrence: HU)
  Receive Date: 20201029
  Receipt Date: 20201029
  Transmission Date: 20210114
  Serious: Yes (Other)
  Sender: FDA-Public Use
  Company Number: NVSC2020HU122293

PATIENT
  Age: 64 Year
  Sex: Female

DRUGS (5)
  1. KISQALI [Suspect]
     Active Substance: RIBOCICLIB
     Dosage: 400 MG, QD (STARTED CYCLE 5 WITH A REDUCED DOSE)
     Route: 048
     Dates: start: 20200406, end: 202010
  2. LETROZOLE. [Suspect]
     Active Substance: LETROZOLE
     Indication: BREAST NEOPLASM
     Dosage: 2.5 MG, QD
     Route: 048
     Dates: start: 20200101
  3. KISQALI [Suspect]
     Active Substance: RIBOCICLIB
     Indication: BREAST NEOPLASM
     Dosage: 400 MG, QD
     Route: 048
     Dates: start: 20200101
  4. KISQALI [Suspect]
     Active Substance: RIBOCICLIB
     Dosage: 600 MG, QD
     Route: 048
     Dates: start: 20200120
  5. KISQALI [Suspect]
     Active Substance: RIBOCICLIB
     Dosage: 600 MG, QD
     Route: 065
     Dates: start: 20200610

REACTIONS (6)
  - Fatigue [Unknown]
  - White blood cell count decreased [Recovered/Resolved]
  - Neutropenia [Unknown]
  - White blood cell count decreased [Unknown]
  - Neutrophil count decreased [Recovering/Resolving]
  - Inappropriate schedule of product administration [Unknown]

NARRATIVE: CASE EVENT DATE: 20200527
